FAERS Safety Report 15974629 (Version 1)
Quarter: 2019Q1

REPORT INFORMATION
  Report Type: Spontaneous
  Country: DE (occurrence: DE)
  Receive Date: 20190218
  Receipt Date: 20190218
  Transmission Date: 20190418
  Serious: Yes (Congenital Anomaly)
  Sender: FDA-Public Use
  Company Number: DE-TEVA-2019-DE-1011767

PATIENT
  Age: 1 Day
  Sex: Female
  Weight: 2.4 kg

DRUGS (3)
  1. SKINOREN [Concomitant]
     Active Substance: AZELAIC ACID
     Indication: ACNE
     Route: 064
  2. ESCITALOPRAM [Suspect]
     Active Substance: ESCITALOPRAM OXALATE
     Indication: DEPRESSION
     Dosage: 10 [MG/D (5) ]
     Route: 064
     Dates: start: 20170806, end: 20170915
  3. FOLSAURE [Concomitant]
     Active Substance: FOLIC ACID
     Indication: PROPHYLAXIS OF NEURAL TUBE DEFECT
     Route: 064
     Dates: start: 20170907, end: 20170913

REACTIONS (2)
  - Transposition of the great vessels [Not Recovered/Not Resolved]
  - Atrial septal defect [Not Recovered/Not Resolved]

NARRATIVE: CASE EVENT DATE: 20180416
